FAERS Safety Report 19677507 (Version 2)
Quarter: 2023Q1

REPORT INFORMATION
  Report Type: Spontaneous
  Country: US (occurrence: US)
  Receive Date: 20210809
  Receipt Date: 20230307
  Transmission Date: 20230418
  Serious: No
  Sender: FDA-Public Use
  Company Number: US-PFIZER INC-2021545853

PATIENT
  Age: 63 Year
  Sex: Female
  Weight: 81.633 kg

DRUGS (6)
  1. IBRANCE [Suspect]
     Active Substance: PALBOCICLIB
     Indication: Breast cancer female
     Dosage: 21 DAYS ON, 7 DAYS OFF
     Route: 048
     Dates: start: 20210430
  2. COLLAGEN [Concomitant]
     Active Substance: COLLAGEN
     Dosage: UNK
  3. VERZENIO [Concomitant]
     Active Substance: ABEMACICLIB
     Dosage: UNK
  4. RETINOL [Concomitant]
     Active Substance: RETINOL
     Dosage: UNK
  5. VITAMIN C [Concomitant]
     Active Substance: ASCORBIC ACID
  6. VITAMIN D3 [Concomitant]
     Active Substance: CHOLECALCIFEROL

REACTIONS (1)
  - Diarrhoea [Unknown]
